FAERS Safety Report 25724352 (Version 2)
Quarter: 2025Q4

REPORT INFORMATION
  Report Type: Spontaneous
  Country: EU (occurrence: EU)
  Receive Date: 20250826
  Receipt Date: 20251204
  Transmission Date: 20260118
  Serious: Yes (Other)
  Sender: CELLTRION
  Company Number: EU-STADA-01424479

PATIENT

DRUGS (5)
  1. ADALIMUMAB [Suspect]
     Active Substance: ADALIMUMAB
     Indication: Crohn^s disease
     Route: 065
  2. ADALIMUMAB [Suspect]
     Active Substance: ADALIMUMAB
  3. USTEKINUMAB [Suspect]
     Active Substance: USTEKINUMAB
     Indication: Crohn^s disease
     Dosage: 90MG, EVERY 8 WEEK
     Route: 065
     Dates: start: 2018
  4. AZATHIOPRINE [Suspect]
     Active Substance: AZATHIOPRINE
     Indication: Crohn^s disease
     Route: 065
  5. INFLIXIMAB [Concomitant]
     Active Substance: INFLIXIMAB
     Indication: Crohn^s disease
     Route: 065

REACTIONS (7)
  - Crohn^s disease [Recovering/Resolving]
  - Rebound effect [Recovering/Resolving]
  - Drug hypersensitivity [Unknown]
  - Treatment noncompliance [Recovering/Resolving]
  - Exposure during pregnancy [Recovered/Resolved]
  - Normal newborn [Recovered/Resolved]
  - Intentional product misuse [Recovering/Resolving]
